FAERS Safety Report 7475486-9 (Version None)
Quarter: 2011Q2

REPORT INFORMATION
  Report Type: 
  Country: None (occurrence: None)
  Receive Date: 20110512
  Receipt Date: 20110502
  Transmission Date: 20111010
  Serious: Yes (Death, Hospitalization, Other)
  Sender: FDA-Public Use
  Company Number: PHHY2011NL35324

PATIENT
  Sex: Male

DRUGS (18)
  1. ZOMETA [Suspect]
     Dosage: 4 MG/5 ML, ONCE PER 28 DAYS
     Route: 042
     Dates: start: 20110324
  2. FOLIC ACID [Concomitant]
     Dosage: 0.5 MG, UNK
  3. GLIMEPIRIDE [Concomitant]
     Dosage: 1 MG, UNK
  4. X-PRAEP [Concomitant]
     Dosage: 30 ML, UNK
  5. ONDANSETRON [Concomitant]
     Dosage: 8 MG, PRN
  6. FERROFUMARAT [Concomitant]
     Dosage: 200 MG, TID
  7. CYPROTERONE [Concomitant]
     Dosage: 50 MG, UNK
  8. OMEPRAZOL [Concomitant]
  9. FENTANYL [Concomitant]
     Dosage: 75 MG, TID
  10. METFORMIN HCL [Concomitant]
  11. PREDNISOLONE [Concomitant]
     Dosage: 2.5 MG, UNK
  12. ZOMETA [Suspect]
     Dosage: 4 MG/5 ML, ONCE PER 28 DAYS
     Route: 042
     Dates: end: 20110422
  13. TEMAZ [Concomitant]
     Dosage: 20 MG, PRN
  14. ZOMETA [Suspect]
     Indication: PROSTATE CANCER METASTATIC
     Dosage: 4 MG/5 ML, ONCE PER 28 DAYS
     Route: 042
     Dates: start: 20101104
  15. METOCLOPRAMID [Concomitant]
     Dosage: 10 MG, TID
  16. ACETAMINOPHEN [Concomitant]
     Dosage: 500 MG, UNK
  17. ATORVASTATIN [Concomitant]
     Dosage: 20 MG, UNK
  18. SOTALOL HCL [Concomitant]
     Dosage: 80 MG, BID

REACTIONS (10)
  - CONSTIPATION [None]
  - HEPATIC FUNCTION ABNORMAL [None]
  - NEOPLASM MALIGNANT [None]
  - MALAISE [None]
  - CONFUSIONAL STATE [None]
  - METASTASES TO CENTRAL NERVOUS SYSTEM [None]
  - VOMITING [None]
  - DISEASE PROGRESSION [None]
  - BLOOD COUNT ABNORMAL [None]
  - FATIGUE [None]
